FAERS Safety Report 20621301 (Version 1)
Quarter: 2022Q1

REPORT INFORMATION
  Report Type: Spontaneous
  Country: US (occurrence: None)
  Receive Date: 20220321
  Receipt Date: 20220321
  Transmission Date: 20220423
  Serious: Yes (Other)
  Sender: FDA-Public Use
  Company Number: None

PATIENT
  Age: 71 Year
  Sex: Female

DRUGS (11)
  1. INGREZZA [Suspect]
     Active Substance: VALBENAZINE
     Indication: Tardive dyskinesia
     Dosage: FREQUENCY : DAILY;?
     Route: 048
     Dates: start: 20220218, end: 20220316
  2. BACLOFEN [Concomitant]
     Active Substance: BACLOFEN
     Dates: start: 20200111
  3. BUPROPION [Concomitant]
     Active Substance: BUPROPION
     Dates: start: 20200929
  4. Fluticasone 50mcg Nasal spray [Concomitant]
     Dates: start: 20200929
  5. Levocitirizine 5mg [Concomitant]
     Dates: start: 20211123
  6. Levothyroxine 0.5mg [Concomitant]
     Dates: start: 20200929
  7. Losartan/HCTZ 100/25mg [Concomitant]
     Dates: start: 20210915
  8. OMEPRAZOLE [Concomitant]
     Active Substance: OMEPRAZOLE
     Dates: start: 20200129
  9. Promethazine 25mg [Concomitant]
     Dates: start: 20220216
  10. QUETIAPINE [Concomitant]
     Active Substance: QUETIAPINE
     Dates: start: 20200511
  11. SUMATRIPTAN [Concomitant]
     Active Substance: SUMATRIPTAN
     Dates: start: 20211123

REACTIONS (2)
  - Therapy cessation [None]
  - Drug ineffective [None]

NARRATIVE: CASE EVENT DATE: 20220316
